FAERS Safety Report 7127305-8 (Version None)
Quarter: 2010Q4

REPORT INFORMATION
  Report Type: 
  Country: None (occurrence: None)
  Receive Date: 20101129
  Receipt Date: 20100406
  Transmission Date: 20110411
  Serious: No
  Sender: FDA-Public Use
  Company Number: US-PFIZER INC-2010044089

PATIENT
  Sex: Male

DRUGS (5)
  1. VIAGRA [Suspect]
     Indication: ERECTILE DYSFUNCTION
     Dosage: 50 MG, UNK
     Route: 048
     Dates: start: 20100402
  2. METOPROLOL [Concomitant]
     Indication: HYPERTENSION
     Dosage: 100 MG, 1X/DAY
     Route: 048
  3. LISINOPRIL AND HYDROCHLOROTHIAZIDE [Concomitant]
     Indication: HYPERTENSION
     Dosage: 20 MG/25 MG, 1X/DAY
     Route: 048
     Dates: start: 20050101
  4. ALLOPURINOL [Concomitant]
     Indication: GOUT
     Dosage: 100 MG, 1X/DAY
     Route: 048
  5. TAMSULOSIN HYDROCHLORIDE [Concomitant]
     Indication: URINARY TRACT DISORDER
     Dosage: 0.4 MG, 1X/DAY
     Route: 048

REACTIONS (1)
  - DRUG INEFFECTIVE [None]
